FAERS Safety Report 6193263-6 (Version None)
Quarter: 2009Q2

REPORT INFORMATION
  Report Type: 
  Country: None (occurrence: None)
  Receive Date: 20090518
  Receipt Date: 20090514
  Transmission Date: 20091009
  Serious: Yes (Death, Life-Threatening, Hospitalization, Other)
  Sender: FDA-Public Use
  Company Number: B0558356A

PATIENT
  Sex: Female
  Weight: 68 kg

DRUGS (2)
  1. LAPATINIB [Suspect]
     Dosage: 1250MG PER DAY
     Route: 048
     Dates: start: 20090114, end: 20090126
  2. CAPECITABINE [Suspect]
     Dosage: 3450MG PER DAY
     Dates: start: 20090114, end: 20090126

REACTIONS (16)
  - ANAL INFLAMMATION [None]
  - ANURIA [None]
  - BONE MARROW FAILURE [None]
  - BRONCHOPNEUMONIA [None]
  - COUGH [None]
  - DIARRHOEA [None]
  - DISSEMINATED INTRAVASCULAR COAGULATION [None]
  - DYSPNOEA [None]
  - LIVER FUNCTION TEST ABNORMAL [None]
  - OLIGURIA [None]
  - PALMAR-PLANTAR ERYTHRODYSAESTHESIA SYNDROME [None]
  - PNEUMONITIS [None]
  - PYREXIA [None]
  - RENAL FUNCTION TEST ABNORMAL [None]
  - SHOCK [None]
  - STOMATITIS [None]
